FAERS Safety Report 8583631-7 (Version None)
Quarter: 2012Q3

REPORT INFORMATION
  Report Type: 
  Country: None (occurrence: None)
  Receive Date: 20120809
  Receipt Date: 20120531
  Transmission Date: 20120928
  Serious: No
  Sender: FDA-Public Use
  Company Number: US-009507513-2012SP022881

PATIENT

DRUGS (1)
  1. CLARITIN REDITABS [Suspect]
     Indication: SINUS DISORDER
     Dosage: 10 MG, UNKNOWN
     Route: 048

REACTIONS (2)
  - SOMNOLENCE [None]
  - NO THERAPEUTIC RESPONSE [None]
